FAERS Safety Report 11121023 (Version 1)
Quarter: 2015Q2

REPORT INFORMATION
  Report Type: Spontaneous
  Country: US (occurrence: None)
  Receive Date: 20150515
  Receipt Date: 20150515
  Transmission Date: 20150821
  Serious: Yes (Life-Threatening, Other)
  Sender: FDA-Public Use
  Company Number: FK201502186

PATIENT
  Age: 42 Year
  Sex: Female

DRUGS (4)
  1. FUROSEMIDE. [Concomitant]
     Active Substance: FUROSEMIDE
  2. CLONIDINE. [Concomitant]
     Active Substance: CLONIDINE
  3. MORPHINE [Concomitant]
     Active Substance: MORPHINE
  4. SUMATRIPTAN (MANUFACTURER UNKNOWN) (SUMATRIPTAN SUCCINATE) (SUMATRIPTAN SUCCINATE) [Suspect]
     Active Substance: SUMATRIPTAN
     Indication: MIGRAINE
     Dosage: HOSPITAL DAY 2
     Route: 058

REACTIONS (12)
  - Cardiac arrest [None]
  - Left atrial dilatation [None]
  - Medication error [None]
  - Hypotension [None]
  - Supraventricular tachycardia [None]
  - Left ventricular hypertrophy [None]
  - Atrial fibrillation [None]
  - Torsade de pointes [None]
  - Blood pressure increased [None]
  - Atrioventricular block complete [None]
  - Cerebrovascular accident [None]
  - Seizure [None]
